FAERS Safety Report 25835253 (Version 2)
Quarter: 2025Q4

REPORT INFORMATION
  Report Type: Spontaneous
  Country: BR (occurrence: BR)
  Receive Date: 20250923
  Receipt Date: 20251114
  Transmission Date: 20260118
  Serious: Yes (Other)
  Sender: CHEPLAPHARM
  Company Number: BR-CHEPLA-2025011016

PATIENT
  Sex: Female
  Weight: 57 kg

DRUGS (7)
  1. CLONAZEPAM [Suspect]
     Active Substance: CLONAZEPAM
     Indication: Anxiety
     Dosage: MAH REF 115240011
     Route: 048
     Dates: start: 2010, end: 202507
  2. AMPLICTIL [Concomitant]
     Active Substance: CHLORPROMAZINE HYDROCHLORIDE
     Indication: Migraine
     Dosage: STARTING USE 5 YEARS AGO AND STOPPED USING IT 5 MONTHS AGO
     Route: 048
     Dates: start: 2020, end: 202504
  3. AMPLICTIL [Concomitant]
     Active Substance: CHLORPROMAZINE HYDROCHLORIDE
     Indication: Pain
     Dosage: STARTING USE 5 YEARS AGO AND STOPPED USING IT 5 MONTHS AGO
     Route: 048
     Dates: start: 2020, end: 202504
  4. AMPLICTIL [Concomitant]
     Active Substance: CHLORPROMAZINE HYDROCHLORIDE
     Indication: Migraine
     Dosage: STARTING USE 5 YEARS AGO AND STOPPED USING IT 5 MONTHS AGO
     Route: 048
     Dates: start: 2020, end: 202504
  5. AMPLICTIL [Concomitant]
     Active Substance: CHLORPROMAZINE HYDROCHLORIDE
     Indication: Quality of life decreased
     Dosage: STARTING USE 5 YEARS AGO AND STOPPED USING IT 5 MONTHS AGO
     Route: 048
     Dates: start: 2020, end: 202504
  6. TOPIRAMATE [Concomitant]
     Active Substance: TOPIRAMATE
     Indication: Migraine
     Dosage: 1 TABLET PER DAY. STARTED USE MANY YEARS AGO?DAILY DOSE: 1 DOSAGE FORM
     Route: 048
  7. METOPROLOL SUCCINATE [Concomitant]
     Active Substance: METOPROLOL SUCCINATE
     Indication: Migraine
     Dosage: 1 TABLET PER DAY. STARTED USE MANY YEARS AGO AND CONTINUES?DAILY DOSE: 1 DOSAGE FORM
     Route: 048

REACTIONS (5)
  - Bipolar disorder [Not Recovered/Not Resolved]
  - Binge eating [Not Recovered/Not Resolved]
  - Drug ineffective [Recovered/Resolved]
  - Depression [Not Recovered/Not Resolved]
  - Product availability issue [Not Recovered/Not Resolved]

NARRATIVE: CASE EVENT DATE: 20200101
